FAERS Safety Report 5272475-X (Version None)
Quarter: 2007Q1

REPORT INFORMATION
  Report Type: 
  Country: None (occurrence: None)
  Receive Date: 20070320
  Receipt Date: 20070320
  Transmission Date: 20070707
  Serious: Yes (Other)
  Sender: FDA-Public Use
  Company Number: None

PATIENT
  Age: 57 Year
  Sex: Female
  Weight: 74.8435 kg

DRUGS (2)
  1. ATIVAN [Suspect]
     Indication: ANXIETY
     Dosage: AS NEEDED 6 MG PER DAY
     Dates: start: 20060201
  2. ATIVAN [Suspect]
     Indication: PANIC ATTACK
     Dosage: AS NEEDED 6 MG PER DAY
     Dates: start: 20060201

REACTIONS (10)
  - ANXIETY [None]
  - CONVULSION [None]
  - DRUG EFFECT DECREASED [None]
  - FLUID RETENTION [None]
  - HEADACHE [None]
  - MUSCLE RIGIDITY [None]
  - MUSCULOSKELETAL STIFFNESS [None]
  - MYALGIA [None]
  - PANIC DISORDER [None]
  - PHARMACEUTICAL PRODUCT COMPLAINT [None]
